FAERS Safety Report 15387262 (Version 3)
Quarter: 2018Q4

REPORT INFORMATION
  Report Type: Spontaneous
  Country: US (occurrence: US)
  Receive Date: 20180914
  Receipt Date: 20181204
  Transmission Date: 20190204
  Serious: Yes (Other)
  Sender: FDA-Public Use
  Company Number: PHEH2018US037791

PATIENT
  Sex: Female

DRUGS (3)
  1. DUREZOL [Suspect]
     Active Substance: DIFLUPREDNATE
     Indication: EYE SWELLING
     Dosage: UNK UNK, QID
     Route: 047
     Dates: start: 20180322
  2. DUREZOL [Suspect]
     Active Substance: DIFLUPREDNATE
     Indication: IRITIS
  3. PREDNISOLONE ACETATE. [Suspect]
     Active Substance: PREDNISOLONE ACETATE
     Indication: PRODUCT USED FOR UNKNOWN INDICATION
     Dosage: TWICE AT BEDTIME AND AGAIN IN THE MORNING
     Route: 047

REACTIONS (10)
  - Blindness [Unknown]
  - Ocular hyperaemia [Unknown]
  - Vision blurred [Unknown]
  - Hypertension [Unknown]
  - Headache [Unknown]
  - Photophobia [Not Recovered/Not Resolved]
  - Eye pain [Not Recovered/Not Resolved]
  - Eye inflammation [Unknown]
  - Drug ineffective [Unknown]
  - Lacrimation increased [Unknown]
